FAERS Safety Report 4286092-1 (Version None)
Quarter: 2004Q1

REPORT INFORMATION
  Report Type: 
  Country: None (occurrence: None)
  Receive Date: 20040120
  Receipt Date: 20030418
  Transmission Date: 20041129
  Serious: Yes (Hospitalization)
  Sender: FDA-Public Use
  Company Number: ENZ-ABE-110

PATIENT
  Age: 42 Year
  Sex: Male
  Weight: 73.9 kg

DRUGS (10)
  1. ABELCET [Suspect]
     Indication: ANTIFUNGAL PROPHYLAXIS
     Dosage: 350 MG MON, WEN, FRI IV
     Route: 042
     Dates: start: 20030101, end: 20030301
  2. VALTREX [Concomitant]
  3. PROTONIX [Concomitant]
  4. PREDNISONE TAB [Concomitant]
  5. HUMULIN 70/30 [Concomitant]
  6. BACTRIM DS [Concomitant]
  7. ATIVAN [Concomitant]
  8. VANCOMYCIN [Concomitant]
  9. BENADRYL [Concomitant]
  10. CYCLOSPORINE [Concomitant]

REACTIONS (2)
  - BLOOD CREATININE INCREASED [None]
  - RENAL IMPAIRMENT [None]
